FAERS Safety Report 14191215 (Version 1)
Quarter: 2017Q4

REPORT INFORMATION
  Report Type: Report from Study
  Country: CA (occurrence: CA)
  Receive Date: 20171115
  Receipt Date: 20171115
  Transmission Date: 20180321
  Serious: Yes (Other)
  Sender: FDA-Public Use
  Company Number: CA-JNJFOC-20171111876

PATIENT
  Age: 32 Year
  Sex: Female
  Weight: 66 kg

DRUGS (1)
  1. REMICADE [Suspect]
     Active Substance: INFLIXIMAB
     Indication: CROHN^S DISEASE
     Dosage: STRENGTH = 100 MG
     Route: 042
     Dates: start: 20160109

REACTIONS (6)
  - Foot fracture [Unknown]
  - Neoplasm malignant [Unknown]
  - Insomnia [Unknown]
  - Fall [Unknown]
  - Head injury [Unknown]
  - Memory impairment [Unknown]

NARRATIVE: CASE EVENT DATE: 20171107
